FAERS Safety Report 7387284-5 (Version None)
Quarter: 2011Q1

REPORT INFORMATION
  Report Type: 
  Country: None (occurrence: None)
  Receive Date: 20110331
  Receipt Date: 20110322
  Transmission Date: 20110831
  Serious: Yes (Hospitalization)
  Sender: FDA-Public Use
  Company Number: AU-ASTRAZENECA-2011SE16326

PATIENT
  Age: 67 Year
  Sex: Male

DRUGS (5)
  1. ZOLADEX [Suspect]
     Indication: PROSTATE CANCER
     Route: 058
     Dates: start: 20101130
  2. COSUDEX [Suspect]
     Indication: PROSTATE CANCER
     Route: 048
     Dates: start: 20101026
  3. TAXOTERE [Suspect]
     Indication: PROSTATE CANCER
     Route: 042
     Dates: start: 20101126
  4. TAXOTERE [Suspect]
     Route: 042
     Dates: start: 20110128
  5. RADIOTHERAPY [Suspect]
     Indication: PROSTATE CANCER

REACTIONS (2)
  - ATRIAL FIBRILLATION [None]
  - GASTROENTERITIS [None]
